FAERS Safety Report 5227821-X (Version None)
Quarter: 2007Q1

REPORT INFORMATION
  Report Type: 
  Country: None (occurrence: None)
  Receive Date: 20070202
  Receipt Date: 20070122
  Transmission Date: 20070707
  Serious: Yes (Hospitalization, Other)
  Sender: FDA-Public Use
  Company Number: US-PFIZER INC-2007006347

PATIENT
  Sex: Male
  Weight: 70.3 kg

DRUGS (2)
  1. BEXTRA [Suspect]
     Indication: NECK PAIN
     Dates: start: 20030903, end: 20050502
  2. BEXTRA [Suspect]
     Indication: BACK PAIN

REACTIONS (2)
  - CEREBROVASCULAR ACCIDENT [None]
  - HEMIPARESIS [None]
